FAERS Safety Report 11851462 (Version 1)
Quarter: 2015Q4

REPORT INFORMATION
  Report Type: Spontaneous
  Country: US (occurrence: US)
  Receive Date: 20151218
  Receipt Date: 20151218
  Transmission Date: 20160305
  Serious: No
  Sender: FDA-Public Use
  Company Number: US-JNJFOC-20151118557

PATIENT
  Sex: Female
  Weight: 49.9 kg

DRUGS (5)
  1. MULTIVITAMINS [Concomitant]
     Active Substance: VITAMINS
     Indication: ROUTINE HEALTH MAINTENANCE
     Route: 065
  2. VITAMINS, OTHER COMBINATIONS [Concomitant]
     Indication: ALOPECIA
     Route: 065
  3. WOMENS ROGAINE UNSCENTED [Suspect]
     Active Substance: MINOXIDIL
     Indication: HAIR GROWTH ABNORMAL
     Dosage: HALF A CAPFUL
     Route: 061
     Dates: start: 20141117
  4. VITAMINS, OTHER COMBINATIONS [Concomitant]
     Indication: HAIR GROWTH ABNORMAL
     Route: 065
  5. WOMENS ROGAINE UNSCENTED [Suspect]
     Active Substance: MINOXIDIL
     Route: 061

REACTIONS (3)
  - Off label use [Not Recovered/Not Resolved]
  - Drug ineffective for unapproved indication [Unknown]
  - Drug administered at inappropriate site [Not Recovered/Not Resolved]
